FAERS Safety Report 9977888 (Version 1)
Quarter: 2014Q1

REPORT INFORMATION
  Report Type: Report from Study
  Country: US (occurrence: US)
  Receive Date: 20140306
  Receipt Date: 20140306
  Transmission Date: 20141002
  Serious: No
  Sender: FDA-Public Use
  Company Number: US-ABBVIE-13P-163-1161519-00

PATIENT
  Age: 66 Year
  Sex: Male

DRUGS (3)
  1. HUMIRA [Suspect]
     Indication: PSORIASIS
     Dosage: DAY 1: TWO 40MG INJECTIONS
     Route: 058
     Dates: start: 20131010
  2. HUMIRA [Suspect]
     Dosage: DAY 8: ONE 40MG INJECTIONS
     Route: 058
     Dates: start: 20131017
  3. HUMIRA [Suspect]
     Dosage: DAY 22: ONE 40MG INJECTIONS
     Route: 058
     Dates: start: 20131031

REACTIONS (1)
  - Inappropriate schedule of drug administration [Recovered/Resolved]
